FAERS Safety Report 8602895-4 (Version None)
Quarter: 2012Q3

REPORT INFORMATION
  Report Type: 
  Country: None (occurrence: None)
  Receive Date: 20120817
  Receipt Date: 20120809
  Transmission Date: 20120928
  Serious: Yes (Other)
  Sender: FDA-Public Use
  Company Number: US-GLAXOSMITHKLINE-A0989927A

PATIENT
  Age: 38 Year
  Sex: Female

DRUGS (4)
  1. PAXIL [Suspect]
     Indication: DEPRESSION
     Route: 065
  2. LAMICTAL [Suspect]
     Indication: CONVULSION
     Route: 065
  3. DEPAKOTE [Suspect]
     Indication: CONVULSION
     Route: 065
  4. PHENOBARBITAL TAB [Suspect]
     Indication: CONVULSION
     Route: 065

REACTIONS (2)
  - ABORTION SPONTANEOUS [None]
  - MATERNAL EXPOSURE DURING PREGNANCY [None]
